FAERS Safety Report 8114480-1 (Version None)
Quarter: 2012Q1

REPORT INFORMATION
  Report Type: 
  Country: None (occurrence: None)
  Receive Date: 20120206
  Receipt Date: 20120127
  Transmission Date: 20120608
  Serious: No
  Sender: FDA-Public Use
  Company Number: US-BIOGENIDEC-2012BI003508

PATIENT
  Age: 45 Year
  Sex: Female

DRUGS (1)
  1. AVONEX [Suspect]
     Indication: MULTIPLE SCLEROSIS
     Route: 030
     Dates: start: 20100115

REACTIONS (14)
  - VAGINAL ODOUR [None]
  - VERTIGO [None]
  - FLUSHING [None]
  - BREATH ODOUR [None]
  - VOMITING [None]
  - VAGINAL DISORDER [None]
  - CHROMATURIA [None]
  - PYREXIA [None]
  - NAUSEA [None]
  - CONSTIPATION [None]
  - ABDOMINAL DISCOMFORT [None]
  - SKIN ODOUR ABNORMAL [None]
  - DIZZINESS [None]
  - HEADACHE [None]
